FAERS Safety Report 6603764-1 (Version None)
Quarter: 2010Q1

REPORT INFORMATION
  Report Type: 
  Country: None (occurrence: None)
  Receive Date: 20100226
  Receipt Date: 20090202
  Transmission Date: 20100710
  Serious: No
  Sender: FDA-Public Use
  Company Number: A0764540A

PATIENT
  Age: 51 Year
  Sex: Female

DRUGS (3)
  1. LAMICTAL CD [Suspect]
     Indication: BIPOLAR DISORDER
     Dosage: 100MG PER DAY
     Route: 048
     Dates: start: 20081217, end: 20090116
  2. LAMOTRIGINE [Suspect]
     Indication: BIPOLAR DISORDER
  3. SYNTHROID [Concomitant]

REACTIONS (2)
  - PRURITUS [None]
  - RASH [None]
